FAERS Safety Report 7536933-7 (Version None)
Quarter: 2011Q2

REPORT INFORMATION
  Report Type: 
  Country: None (occurrence: None)
  Receive Date: 20110609
  Receipt Date: 20110606
  Transmission Date: 20111010
  Serious: No
  Sender: FDA-Public Use
  Company Number: US-TEVA-285062USA

PATIENT
  Sex: Female
  Weight: 68.1 kg

DRUGS (2)
  1. CLARITIN [Concomitant]
     Indication: MULTIPLE ALLERGIES
  2. PLAN B ONE-STEP [Suspect]
     Indication: POST COITAL CONTRACEPTION
     Dosage: 1.5 MILLIGRAM;
     Route: 048
     Dates: start: 20110502, end: 20110502

REACTIONS (5)
  - NAUSEA [None]
  - METRORRHAGIA [None]
  - PELVIC PAIN [None]
  - VOMITING [None]
  - MENSTRUATION DELAYED [None]
